FAERS Safety Report 18157983 (Version 1)
Quarter: 2020Q3

REPORT INFORMATION
  Report Type: Spontaneous
  Country: US (occurrence: US)
  Receive Date: 20200817
  Receipt Date: 20200817
  Transmission Date: 20201103
  Serious: No
  Sender: FDA-Public Use
  Company Number: US-MEDEXUS PHARMA, INC.-2019MED00198

PATIENT
  Sex: Female

DRUGS (3)
  1. RASUVO [Suspect]
     Active Substance: METHOTREXATE SODIUM
     Dosage: 22.5 MG
     Route: 058
  2. RASUVO [Suspect]
     Active Substance: METHOTREXATE SODIUM
     Dosage: 22.5 MG
     Route: 058
  3. RASUVO [Suspect]
     Active Substance: METHOTREXATE SODIUM
     Dosage: 22.5 MG
     Route: 058
     Dates: start: 2017

REACTIONS (5)
  - Device failure [Unknown]
  - Nervousness [Unknown]
  - Drug dispensed to wrong patient [Recovered/Resolved]
  - Vein disorder [Not Recovered/Not Resolved]
  - Accidental exposure to product [Unknown]
